FAERS Safety Report 11924484 (Version 1)
Quarter: 2016Q1

REPORT INFORMATION
  Report Type: Spontaneous
  Country: US (occurrence: US)
  Receive Date: 20160118
  Receipt Date: 20160118
  Transmission Date: 20160526
  Serious: Yes (Hospitalization)
  Sender: FDA-Public Use
  Company Number: US-ACTELION-A-NJ2016-129898

PATIENT
  Age: 41 Year
  Sex: Female

DRUGS (3)
  1. OPSUMIT [Suspect]
     Active Substance: MACITENTAN
     Indication: PULMONARY ARTERIAL HYPERTENSION
     Dosage: 10 MG, UNK
     Route: 048
     Dates: start: 20140709
  2. RIOCIGUAT [Concomitant]
     Active Substance: RIOCIGUAT
  3. TYVASO [Concomitant]
     Active Substance: TREPROSTINIL

REACTIONS (1)
  - Pneumonia [Unknown]
